FAERS Safety Report 10573790 (Version 4)
Quarter: 2014Q4

REPORT INFORMATION
  Report Type: Spontaneous
  Country: US (occurrence: US)
  Receive Date: 20141110
  Receipt Date: 20141216
  Transmission Date: 20150529
  Serious: Yes (Other)
  Sender: FDA-Public Use
  Company Number: US-ACTELION-A-US2014-105941

PATIENT
  Age: 66 Year
  Sex: Female
  Weight: 132.43 kg

DRUGS (11)
  1. TORASEMIDE [Concomitant]
     Active Substance: TORSEMIDE
     Dosage: 20 MG, QD PRN
  2. OPSUMIT [Suspect]
     Active Substance: MACITENTAN
     Indication: PULMONARY ARTERIAL HYPERTENSION
     Dosage: 10 MG, QD
     Route: 048
  3. ALBUTEROL. [Concomitant]
     Active Substance: ALBUTEROL
  4. CLONIDINE. [Concomitant]
     Active Substance: CLONIDINE
     Dosage: 0.1 MG, BID
  5. FLEXERIL [Concomitant]
     Active Substance: CYCLOBENZAPRINE HYDROCHLORIDE
     Dosage: 10 MG, BID PRN
  6. EPITANE [Concomitant]
  7. METRONIDAZOLE. [Concomitant]
     Active Substance: METRONIDAZOLE
  8. OPSUMIT [Suspect]
     Active Substance: MACITENTAN
     Dosage: UNK
     Route: 048
  9. LORAZEPAM. [Concomitant]
     Active Substance: LORAZEPAM
     Indication: ANXIETY
     Dosage: 0.5 MG, PRN
  10. NAPROXEN. [Concomitant]
     Active Substance: NAPROXEN
     Dosage: 500 MG, BID
  11. HUMULIN NOS [Concomitant]
     Active Substance: INSULIN HUMAN
     Dosage: 12 U, TID

REACTIONS (5)
  - Drug hypersensitivity [Recovered/Resolved]
  - Peripheral swelling [Recovered/Resolved]
  - Throat tightness [Recovered/Resolved]
  - Pain [Recovered/Resolved]
  - Erythema [Recovered/Resolved]
